FAERS Safety Report 11777660 (Version 1)
Quarter: 2015Q4

REPORT INFORMATION
  Report Type: Spontaneous
  Country: US (occurrence: None)
  Receive Date: 20151124
  Receipt Date: 20151124
  Transmission Date: 20160304
  Serious: Yes (Hospitalization, Other)
  Sender: FDA-Public Use
  Company Number: None

PATIENT
  Age: 44 Year
  Sex: Female

DRUGS (1)
  1. FAZACLO [Suspect]
     Active Substance: CLOZAPINE
     Indication: SCHIZOPHRENIA
     Route: 048
     Dates: start: 20150504, end: 20150506

REACTIONS (5)
  - Fall [None]
  - Refusal of treatment by patient [None]
  - Encephalopathy [None]
  - Tonic convulsion [None]
  - Mass [None]

NARRATIVE: CASE EVENT DATE: 20150906
